FAERS Safety Report 15130002 (Version 1)
Quarter: 2018Q3

REPORT INFORMATION
  Report Type: Spontaneous
  Country: CA (occurrence: CA)
  Receive Date: 20180711
  Receipt Date: 20180711
  Transmission Date: 20181010
  Serious: Yes (Other)
  Sender: FDA-Public Use
  Company Number: CA-ALLERGAN-1834609US

PATIENT
  Age: 38 Year
  Sex: Female

DRUGS (4)
  1. FETZIMA [Suspect]
     Active Substance: LEVOMILNACIPRAN HYDROCHLORIDE
     Indication: ATTENTION DEFICIT/HYPERACTIVITY DISORDER
  2. ZOLOFT [Concomitant]
     Active Substance: SERTRALINE HYDROCHLORIDE
  3. FETZIMA [Suspect]
     Active Substance: LEVOMILNACIPRAN HYDROCHLORIDE
     Indication: PREMENSTRUAL DYSPHORIC DISORDER
     Dosage: 50 MG, UNK
     Route: 048
  4. VYVANSE [Concomitant]
     Active Substance: LISDEXAMFETAMINE DIMESYLATE

REACTIONS (11)
  - Hallucination, auditory [Recovered/Resolved]
  - Suicidal ideation [Recovered/Resolved]
  - Alcohol abuse [Recovered/Resolved]
  - Hypertension [Recovered/Resolved]
  - Paraesthesia [Recovered/Resolved]
  - Body temperature increased [Recovered/Resolved]
  - Serotonin syndrome [Recovered/Resolved]
  - Hyperhidrosis [Recovered/Resolved]
  - Off label use [Unknown]
  - Head discomfort [Recovered/Resolved]
  - Paranoia [Recovered/Resolved]
